FAERS Safety Report 7112132-8 (Version None)
Quarter: 2010Q4

REPORT INFORMATION
  Report Type: 
  Country: None (occurrence: None)
  Receive Date: 20101119
  Receipt Date: 20091127
  Transmission Date: 20110411
  Serious: No
  Sender: FDA-Public Use
  Company Number: A0832964A

PATIENT
  Sex: Male

DRUGS (1)
  1. AVODART [Suspect]
     Route: 065
     Dates: start: 20090101

REACTIONS (3)
  - ADVERSE DRUG REACTION [None]
  - VISION BLURRED [None]
  - VISUAL ACUITY REDUCED [None]
